FAERS Safety Report 23754999 (Version 2)
Quarter: 2024Q2

REPORT INFORMATION
  Report Type: Other
  Country: US (occurrence: None)
  Receive Date: 20240418
  Receipt Date: 20240517
  Transmission Date: 20240716
  Serious: Yes (Hospitalization, Other)
  Sender: FDA-Public Use
  Company Number: US-ROCHE-3544566

PATIENT
  Age: 41 Year
  Sex: Female

DRUGS (6)
  1. AVASTIN [Suspect]
     Active Substance: BEVACIZUMAB
     Indication: Colon cancer stage IV
     Route: 065
  2. FLUOROURACIL [Suspect]
     Active Substance: FLUOROURACIL
     Indication: Colon cancer stage IV
     Dosage: IN SODIUM CHLORIDE 0.9% 25 ML HOME INFUSION.
     Route: 042
  3. LEUCOVORIN [Suspect]
     Active Substance: LEUCOVORIN\LEUCOVORIN CALCIUM
     Indication: Colon cancer stage IV
     Route: 065
  4. ELOXATIN [Suspect]
     Active Substance: OXALIPLATIN
     Indication: Colon cancer stage IV
     Dosage: IN DEXTROSE 5% 250 ML IVPB.
     Route: 042
  5. CAMPTOSAR [Suspect]
     Active Substance: IRINOTECAN HYDROCHLORIDE
     Indication: Colon cancer stage IV
     Dosage: IN DEXTROSE 5 % 250 ML IVPB.
     Route: 042
  6. MVASI [Suspect]
     Active Substance: BEVACIZUMAB-AWWB
     Indication: Colon cancer stage IV
     Dosage: IN SODIUM CHLORIDE 0.9%
     Route: 042

REACTIONS (23)
  - Blood alkaline phosphatase increased [Unknown]
  - Blood creatinine decreased [Unknown]
  - Carcinoembryonic antigen increased [Unknown]
  - Haemoglobin decreased [Unknown]
  - Haematocrit decreased [Unknown]
  - Mean platelet volume decreased [Unknown]
  - Vulval neoplasm [Recovered/Resolved]
  - Metastases to lung [Unknown]
  - Thyroid mass [Unknown]
  - Biloma [Unknown]
  - Liver abscess [Unknown]
  - Carbohydrate antigen 19-9 increased [Unknown]
  - Oedema peripheral [Unknown]
  - Carcinoembryonic antigen decreased [Unknown]
  - Amenorrhoea [Unknown]
  - Fatigue [Unknown]
  - Nausea [Unknown]
  - Diarrhoea [Unknown]
  - Pain [Unknown]
  - Tachycardia [Unknown]
  - Dyspnoea [Unknown]
  - Leukocytosis [Unknown]
  - Lymphadenopathy [Unknown]
